FAERS Safety Report 20190365 (Version 1)
Quarter: 2021Q4

REPORT INFORMATION
  Report Type: Report from Study
  Country: HU (occurrence: HU)
  Receive Date: 20211215
  Receipt Date: 20211215
  Transmission Date: 20220303
  Serious: Yes (Death, Other)
  Sender: FDA-Public Use
  Company Number: HU-AstraZeneca-2021A864256

PATIENT
  Age: 1 Year
  Sex: Female

DRUGS (1)
  1. SYNAGIS [Suspect]
     Active Substance: PALIVIZUMAB
     Indication: Antiviral prophylaxis
     Dosage: BY BODY WEIGHT PER MONTH
     Route: 030
     Dates: start: 20211109

REACTIONS (1)
  - Death [Fatal]

NARRATIVE: CASE EVENT DATE: 20211120
